FAERS Safety Report 4995642-9 (Version None)
Quarter: 2006Q2

REPORT INFORMATION
  Report Type: 
  Country: None (occurrence: None)
  Receive Date: 20060504
  Receipt Date: 20060421
  Transmission Date: 20061013
  Serious: Yes (Disabling, Other)
  Sender: FDA-Public Use
  Company Number: 2006027950

PATIENT
  Age: 47 Year
  Sex: Male
  Weight: 99.7913 kg

DRUGS (6)
  1. VIAGRA [Suspect]
     Indication: ERECTILE DYSFUNCTION
     Dosage: 10 MG (10 MG)
     Dates: start: 20030301
  2. DILANTIN [Suspect]
     Indication: CONVULSION
     Dosage: 300 MG (300 MG, 1 IN 1 D)
     Dates: start: 20030101
  3. PREDNISONE TAB [Suspect]
     Indication: SARCOIDOSIS
     Dosage: 40 MG, DAILY INTERVAL: EVERY OTHER DAY
     Dates: start: 20050803
  4. DEPAKOTE [Suspect]
     Indication: CONVULSION
     Dates: start: 20030101, end: 20030101
  5. ALL OTHER THERAPEUTIC PRODUCTS (ALL OTHER THERAPEUTIC PRODUCTS) [Suspect]
     Indication: ILL-DEFINED DISORDER
  6. LEVITRA [Suspect]
     Indication: ILL-DEFINED DISORDER
     Dosage: 20 MG

REACTIONS (8)
  - CEREBRAL CYST [None]
  - CEREBRAL SARCOIDOSIS [None]
  - CONVULSION [None]
  - DEPRESSION [None]
  - DRUG INEFFECTIVE [None]
  - ERECTILE DYSFUNCTION [None]
  - OPTIC NERVE DISORDER [None]
  - OVERWEIGHT [None]
